FAERS Safety Report 6221438-6 (Version None)
Quarter: 2009Q2

REPORT INFORMATION
  Report Type: 
  Country: None (occurrence: None)
  Receive Date: 20090610
  Receipt Date: 20090529
  Transmission Date: 20091009
  Serious: Yes (Hospitalization)
  Sender: FDA-Public Use
  Company Number: GB-ELI_LILLY_AND_COMPANY-GB200906000023

PATIENT
  Age: 21 Year
  Sex: Female

DRUGS (2)
  1. HUMALOG [Suspect]
     Dosage: UNK, UNKNOWN
     Route: 065
  2. LANTUS [Concomitant]
     Indication: TYPE 1 DIABETES MELLITUS
     Dosage: 28 IU, DAILY (1/D)
     Route: 058
     Dates: start: 20080917, end: 20090415

REACTIONS (3)
  - ABDOMINAL PAIN [None]
  - DIARRHOEA [None]
  - NAUSEA [None]
